FAERS Safety Report 8721212 (Version 3)
Quarter: 2012Q4

REPORT INFORMATION
  Report Type: 
  Country: JP (occurrence: JP)
  Receive Date: 20120813
  Receipt Date: 20121224
  Transmission Date: 20130627
  Serious: Yes (Hospitalization, Other)
  Sender: FDA-Public Use
  Company Number: JP-GENZYME-THYM-1001282

PATIENT
  Age: 10 Year
  Sex: Male
  Weight: 42 kg

DRUGS (9)
  1. THYMOGLOBULINE [Suspect]
     Indication: BONE MARROW CONDITIONING REGIMEN
     Dosage: 86 mg, qd
     Route: 042
     Dates: start: 20090820, end: 20090823
  2. FLUDARABINE PHOSPHATE [Concomitant]
     Indication: BONE MARROW CONDITIONING REGIMEN
     Dosage: 25 mg/m2, UNK
     Route: 065
     Dates: start: 20090820, end: 20090823
  3. MELPHALAN [Concomitant]
     Indication: BONE MARROW CONDITIONING REGIMEN
     Dosage: 2 mg/m2, UNK
     Route: 065
     Dates: start: 20090820, end: 20090821
  4. TACROLIMUS [Concomitant]
     Indication: PROPHYLAXIS AGAINST GRAFT VERSUS HOST DISEASE
     Dosage: UNK
     Route: 065
     Dates: start: 20090824, end: 20100225
  5. TACROLIMUS [Concomitant]
     Dosage: UNK
     Dates: start: 2009
  6. EPINASTINE HYDROCHLORIDE [Concomitant]
     Indication: ANTIFUNGAL PROPHYLAXIS
     Dosage: UNK
     Route: 065
     Dates: start: 20090105
  7. ACICLOVIR [Concomitant]
     Indication: ANTIVIRAL PROPHYLAXIS
     Dosage: UNK
     Route: 065
     Dates: start: 20090819, end: 20090928
  8. SULFAMETHOPRIM [Concomitant]
     Indication: ANTIFUNGAL PROPHYLAXIS
     Dosage: UNK
     Route: 065
     Dates: start: 20090105
  9. LACTOMIN [Concomitant]
     Indication: PROPHYLAXIS AGAINST DIARRHOEA
     Dosage: UNK
     Route: 065

REACTIONS (5)
  - Acute graft versus host disease in intestine [Recovered/Resolved]
  - Acute graft versus host disease in skin [Unknown]
  - Chronic graft versus host disease [Unknown]
  - Epstein-Barr virus infection [Recovered/Resolved]
  - Cytomegalovirus test positive [Recovered/Resolved]
